FAERS Safety Report 17372576 (Version 1)
Quarter: 2020Q1

REPORT INFORMATION
  Report Type: Report from Study
  Country: CA (occurrence: CA)
  Receive Date: 20200205
  Receipt Date: 20200205
  Transmission Date: 20200409
  Serious: Yes (Hospitalization)
  Sender: FDA-Public Use
  Company Number: CA-TEVA-2020-CA-1178322

PATIENT
  Sex: Male
  Weight: 102 kg

DRUGS (3)
  1. CIPROFLOXACIN. [Suspect]
     Active Substance: CIPROFLOXACIN
     Indication: SURGERY
     Route: 065
  2. ESBRIET [Interacting]
     Active Substance: PIRFENIDONE
     Indication: IDIOPATHIC PULMONARY FIBROSIS
     Route: 065
  3. RAMIPRIL. [Interacting]
     Active Substance: RAMIPRIL
     Dosage: 10 MILLIGRAM DAILY;

REACTIONS (5)
  - Calculus urinary [Not Recovered/Not Resolved]
  - Urinary tract obstruction [Not Recovered/Not Resolved]
  - Malaise [Not Recovered/Not Resolved]
  - Drug interaction [Not Recovered/Not Resolved]
  - Nausea [Not Recovered/Not Resolved]
